FAERS Safety Report 6103590-6 (Version None)
Quarter: 2009Q1

REPORT INFORMATION
  Report Type: 
  Country: None (occurrence: None)
  Receive Date: 20090305
  Receipt Date: 20090116
  Transmission Date: 20090719
  Serious: No
  Sender: FDA-Public Use
  Company Number: US-BAYER-200910174BCC

PATIENT
  Age: 41 Year
  Sex: Female
  Weight: 62 kg

DRUGS (4)
  1. MIDOL [Suspect]
     Indication: DYSMENORRHOEA
  2. YAZ [Concomitant]
  3. IMITREX [Concomitant]
  4. MAXALT [Concomitant]

REACTIONS (2)
  - ANXIETY [None]
  - FEELING JITTERY [None]
